FAERS Safety Report 8096121-5 (Version None)
Quarter: 2012Q1

REPORT INFORMATION
  Report Type: 
  Country: None (occurrence: None)
  Receive Date: 20120131
  Receipt Date: 20120130
  Transmission Date: 20120608
  Serious: Yes (Hospitalization)
  Sender: FDA-Public Use
  Company Number: US-GLAXOSMITHKLINE-A0936220A

PATIENT
  Age: 55 Year
  Sex: Female

DRUGS (1)
  1. AVANDIA [Suspect]
     Indication: TYPE 2 DIABETES MELLITUS
     Dosage: 8MG PER DAY
     Route: 048
     Dates: start: 20000614, end: 20070815

REACTIONS (7)
  - CORONARY ARTERY DISEASE [None]
  - ISCHAEMIA [None]
  - ANGINA PECTORIS [None]
  - MYOCARDIAL INFARCTION [None]
  - DIZZINESS [None]
  - PAIN IN EXTREMITY [None]
  - GAIT DISTURBANCE [None]
